FAERS Safety Report 23904309 (Version 1)
Quarter: 2024Q2

REPORT INFORMATION
  Report Type: Spontaneous
  Country: JP (occurrence: JP)
  Receive Date: 20240527
  Receipt Date: 20240527
  Transmission Date: 20240716
  Serious: Yes (Other)
  Sender: FDA-Public Use
  Company Number: JP-UCBJ-CD202403533UCBPHAPROD

PATIENT
  Sex: Female
  Weight: 63 kg

DRUGS (1)
  1. RYSTIGGO [Suspect]
     Active Substance: ROZANOLIXIZUMAB-NOLI
     Indication: Myasthenia gravis
     Dosage: 420 MILLIGRAM
     Route: 058
     Dates: start: 20240418, end: 20240509

REACTIONS (3)
  - Myasthenia gravis [Not Recovered/Not Resolved]
  - Urticaria [Recovered/Resolved]
  - Photopsia [Recovered/Resolved]

NARRATIVE: CASE EVENT DATE: 20240418
